FAERS Safety Report 13756598 (Version 2)
Quarter: 2019Q4

REPORT INFORMATION
  Report Type: Spontaneous
  Country: US (occurrence: US)
  Receive Date: 20170714
  Receipt Date: 20191022
  Transmission Date: 20200122
  Serious: Yes (Other)
  Sender: FDA-Public Use
  Company Number: US-PFIZER INC-2017306908

PATIENT
  Age: 67 Year
  Sex: Male

DRUGS (10)
  1. FLOMAX [Concomitant]
     Active Substance: TAMSULOSIN HYDROCHLORIDE
     Indication: ERECTILE DYSFUNCTION
     Dosage: 0.4 MG, DAILY
     Dates: start: 200909, end: 2011
  2. VIAGRA [Suspect]
     Active Substance: SILDENAFIL CITRATE
     Indication: ERECTILE DYSFUNCTION
     Dosage: UNK
     Route: 048
     Dates: start: 20061120, end: 20150131
  3. VIAGRA [Suspect]
     Active Substance: SILDENAFIL CITRATE
     Dosage: 100 MG, (1-2 TIME PER MONTH)
     Route: 048
     Dates: start: 200905, end: 201501
  4. JALYN [Concomitant]
     Active Substance: DUTASTERIDE\TAMSULOSIN HYDROCHLORIDE
     Indication: ERECTILE DYSFUNCTION
     Dosage: 0.5 TO 0.4 MG, DAILY
     Dates: start: 201012, end: 201109
  5. VIAGRA [Suspect]
     Active Substance: SILDENAFIL CITRATE
     Dosage: 100 MG, (1-2 TIME PER MONTH)
     Route: 048
     Dates: start: 201110, end: 20140531
  6. TRIMIX [Concomitant]
     Indication: ERECTILE DYSFUNCTION
     Dosage: 0.6 ML, WEEKLY (ONCE PER WEEK)
     Dates: start: 201508, end: 2016
  7. AVEED [Concomitant]
     Active Substance: TESTOSTERONE UNDECANOATE
     Indication: ERECTILE DYSFUNCTION
     Dosage: 750 MG, EVERY 10 WEEKS
     Dates: start: 20150203
  8. FLOMAX [Concomitant]
     Active Substance: TAMSULOSIN HYDROCHLORIDE
     Dosage: 0.4 MG, DAILY
     Dates: start: 201902
  9. VIAGRA [Suspect]
     Active Substance: SILDENAFIL CITRATE
     Dosage: 100 MG, (1-2 TIME PER MONTH)
     Route: 048
     Dates: start: 200611, end: 201107
  10. EDEX [Concomitant]
     Active Substance: ALPROSTADIL
     Indication: ERECTILE DYSFUNCTION
     Dosage: 20 UG, WEEKLY (ONCE PER WEEK)
     Dates: start: 20150622, end: 201508

REACTIONS (1)
  - Malignant melanoma [Unknown]

NARRATIVE: CASE EVENT DATE: 20150812
